FAERS Safety Report 8581620-X (Version None)
Quarter: 2012Q3

REPORT INFORMATION
  Report Type: 
  Country: None (occurrence: None)
  Receive Date: 20120801
  Receipt Date: 20120801
  Transmission Date: 20120928
  Serious: Yes (Other)
  Sender: FDA-Public Use
  Company Number: None

PATIENT
  Sex: Female

DRUGS (2)
  1. TRAMADOL HCL [Suspect]
     Indication: ARTHRALGIA
     Dosage: 50 MG EVERY 8/12 HOURS PO
     Route: 048
     Dates: start: 20120726
  2. MACROBID [Concomitant]

REACTIONS (2)
  - DIZZINESS [None]
  - NAUSEA [None]
